FAERS Safety Report 18117578 (Version 1)
Quarter: 2020Q3

REPORT INFORMATION
  Report Type: Spontaneous
  Country: US (occurrence: US)
  Receive Date: 20200805
  Receipt Date: 20200805
  Transmission Date: 20201103
  Serious: No
  Sender: FDA-Public Use
  Company Number: None

PATIENT
  Age: 78 Year
  Sex: Female
  Weight: 45.45 kg

DRUGS (2)
  1. FLUOXETINE 10MG CAPSULES [Suspect]
     Active Substance: FLUOXETINE HYDROCHLORIDE
     Indication: DEPRESSION
     Dosage: ?          QUANTITY:2 CAPSULE(S);?
     Route: 048
  2. SYNTHROID [Concomitant]
     Active Substance: LEVOTHYROXINE SODIUM

REACTIONS (7)
  - Nausea [None]
  - Hyperhidrosis [None]
  - Emotional disorder [None]
  - Condition aggravated [None]
  - Product substitution issue [None]
  - Headache [None]
  - Malaise [None]

NARRATIVE: CASE EVENT DATE: 20200801
